FAERS Safety Report 7985752-6 (Version None)
Quarter: 2011Q4

REPORT INFORMATION
  Report Type: 
  Country: None (occurrence: None)
  Receive Date: 20111216
  Receipt Date: 20110107
  Transmission Date: 20120403
  Serious: No
  Sender: FDA-Public Use
  Company Number: US-VIIV HEALTHCARE LIMITED-A0904080A

PATIENT
  Age: 54 Year
  Sex: Male

DRUGS (2)
  1. LEXIVA [Suspect]
     Indication: HIV INFECTION
     Dosage: 1TAB TWICE PER DAY
     Route: 048
     Dates: start: 20101101, end: 20101224
  2. OTHER MEDICATIONS [Concomitant]

REACTIONS (2)
  - DIARRHOEA [None]
  - SOMNOLENCE [None]
